FAERS Safety Report 8585889-7 (Version None)
Quarter: 2012Q3

REPORT INFORMATION
  Report Type: 
  Country: None (occurrence: None)
  Receive Date: 20120810
  Receipt Date: 20120803
  Transmission Date: 20120928
  Serious: Yes (Other)
  Sender: FDA-Public Use
  Company Number: HU-UCBSA-063128

PATIENT
  Age: 43 Year
  Sex: Female

DRUGS (6)
  1. CIMZIA [Suspect]
     Dates: start: 20120530, end: 20120613
  2. MEDROL [Concomitant]
     Dosage: 20 MG
  3. DELAGIL [Concomitant]
     Dates: start: 20111105
  4. MEDROL [Concomitant]
     Dates: start: 20110905
  5. ARAVA [Concomitant]
     Dates: start: 20120105
  6. BACLOFEN [Concomitant]
     Dates: start: 20120505

REACTIONS (8)
  - DISTURBANCE IN ATTENTION [None]
  - DIZZINESS [None]
  - HYPOAESTHESIA [None]
  - BURNING SENSATION [None]
  - HYPOAESTHESIA ORAL [None]
  - ERYTHEMA [None]
  - FATIGUE [None]
  - PHARYNGEAL HYPOAESTHESIA [None]
